FAERS Safety Report 5874432-9 (Version None)
Quarter: 2008Q3

REPORT INFORMATION
  Report Type: 
  Country: None (occurrence: None)
  Receive Date: 20080908
  Receipt Date: 20080829
  Transmission Date: 20090109
  Serious: Yes (Hospitalization)
  Sender: FDA-Public Use
  Company Number: JP-PFIZER INC-2008057471

PATIENT
  Sex: Female

DRUGS (14)
  1. AMLODIPINE BESYLATE [Suspect]
     Indication: HYPERTENSION
     Dosage: DAILY DOSE:5MG
     Route: 048
     Dates: start: 20080403, end: 20080627
  2. SELBEX [Concomitant]
     Indication: DUODENAL ULCER
     Dosage: DAILY DOSE:150MG
     Route: 048
  3. SELBEX [Concomitant]
     Indication: REFLUX OESOPHAGITIS
  4. ADALAT T [Concomitant]
     Indication: HYPERTENSION
     Dosage: DAILY DOSE:10MG
     Route: 048
     Dates: start: 20080627
  5. FAMOTIDINE [Concomitant]
     Indication: DUODENAL ULCER
     Dosage: DAILY DOSE:20MG
     Route: 048
     Dates: start: 20080620
  6. FAMOTIDINE [Concomitant]
     Indication: REFLUX OESOPHAGITIS
  7. LASIX [Concomitant]
     Indication: HYPERTENSION
     Dosage: DAILY DOSE:20MG
     Route: 048
     Dates: start: 20080620
  8. LASIX [Concomitant]
     Indication: OEDEMA
  9. AMARYL [Concomitant]
     Indication: DIABETES MELLITUS
     Dosage: DAILY DOSE:2MG
     Route: 048
     Dates: start: 20080616
  10. OMEPRAZOLE [Concomitant]
     Indication: DUODENAL ULCER
     Dosage: DAILY DOSE:20MG
     Route: 048
     Dates: start: 20080609, end: 20080619
  11. OMEPRAZOLE [Concomitant]
     Indication: REFLUX OESOPHAGITIS
  12. TOWARAT [Concomitant]
     Indication: HYPERTENSION
     Dosage: DAILY DOSE:20MG
     Route: 048
     Dates: end: 20080402
  13. HARNIN [Concomitant]
     Indication: POLLAKIURIA
     Dosage: DAILY DOSE:600MG
     Route: 048
  14. HARNIN [Concomitant]
     Indication: SOMATOFORM DISORDER

REACTIONS (2)
  - BLISTER [None]
  - OEDEMA [None]
